FAERS Safety Report 12749955 (Version 1)
Quarter: 2016Q3

REPORT INFORMATION
  Report Type: Spontaneous
  Country: US (occurrence: US)
  Receive Date: 20160915
  Receipt Date: 20160915
  Transmission Date: 20161109
  Serious: Yes (Other)
  Sender: FDA-Public Use
  Company Number: None

PATIENT
  Age: 72 Year
  Sex: Female
  Weight: 49.5 kg

DRUGS (4)
  1. PRAVASTATIN. [Suspect]
     Active Substance: PRAVASTATIN
     Indication: BLOOD CHOLESTEROL
     Dates: end: 20140901
  2. COQ10 [Concomitant]
     Active Substance: UBIDECARENONE
  3. ALIVE OVER 50 GUMMY [Concomitant]
  4. LOW DOES ASPIRIN [Concomitant]

REACTIONS (1)
  - Memory impairment [None]

NARRATIVE: CASE EVENT DATE: 20160901
